FAERS Safety Report 16657702 (Version 1)
Quarter: 2019Q3

REPORT INFORMATION
  Report Type: Spontaneous
  Country: CN (occurrence: CN)
  Receive Date: 20190801
  Receipt Date: 20190801
  Transmission Date: 20191004
  Serious: Yes (Hospitalization)
  Sender: FDA-Public Use
  Company Number: CN-BAXTER-2019BAX014997

PATIENT
  Age: 40 Year
  Sex: Female
  Weight: 60 kg

DRUGS (8)
  1. EPIRUBICIN HYDROCHLORIDE. [Suspect]
     Active Substance: EPIRUBICIN HYDROCHLORIDE
     Indication: SOFT TISSUE SARCOMA
     Dosage: ON DAY 1, EPIRUBICIN HYDROCHLORIDE + WATER FOR INJECTION 60 ML
     Route: 041
     Dates: start: 20190417, end: 20190417
  2. STERILE WATER FOR INJECTION [Suspect]
     Active Substance: WATER
     Dosage: DRUG RE-INTRODUCED. EPIRUBICIN HYDROCHLORIDE + WATER FOR INJECTION
     Route: 041
  3. ENDOXAN [Suspect]
     Active Substance: CYCLOPHOSPHAMIDE
     Indication: SOFT TISSUE SARCOMA
     Dosage: ON DAY 2, ENDOXAN + 0.9% NS (NORMAL SALINE) 80 ML
     Route: 042
     Dates: start: 20190418, end: 20190418
  4. STERILE WATER FOR INJECTION [Suspect]
     Active Substance: WATER
     Indication: MEDICATION DILUTION
     Dosage: ON DAY 1, EPIRUBICIN HYDROCHLORIDE 60 MG + WATER FOR INJECTION
     Route: 041
     Dates: start: 20190417, end: 20190417
  5. ENDOXAN [Suspect]
     Active Substance: CYCLOPHOSPHAMIDE
     Dosage: DRUG RE-INTRODUCED. ENDOXAN + 0.9% NS
     Route: 042
  6. 0.9% SODIUM CHLORIDE INJECTION [Suspect]
     Active Substance: SODIUM CHLORIDE
     Indication: MEDICATION DILUTION
     Dosage: ON DAY 2, ENDOXAN 750 MG + 0.9% NS
     Route: 042
     Dates: start: 20190418, end: 20190418
  7. 0.9% SODIUM CHLORIDE INJECTION [Suspect]
     Active Substance: SODIUM CHLORIDE
     Dosage: DRUG RE-INTRODUCED. ENDOXAN + 0.9% NS
     Route: 042
  8. EPIRUBICIN HYDROCHLORIDE. [Suspect]
     Active Substance: EPIRUBICIN HYDROCHLORIDE
     Dosage: DRUG RE-INTRODUCED. EPIRUBICIN HYDROCHLORIDE + WATER FOR INJECTION
     Route: 041

REACTIONS (1)
  - Bone marrow failure [Recovering/Resolving]

NARRATIVE: CASE EVENT DATE: 20190426
